FAERS Safety Report 6006922-2 (Version None)
Quarter: 2008Q4

REPORT INFORMATION
  Report Type: 
  Country: None (occurrence: None)
  Receive Date: 20081215
  Receipt Date: 20081204
  Transmission Date: 20090506
  Serious: Yes (Hospitalization)
  Sender: FDA-Public Use
  Company Number: 2008SP024769

PATIENT
  Age: 84 Year
  Sex: Male

DRUGS (4)
  1. DIAFUSOR (GLYCERYL TRINITRATE) (GLYCERYL TRINITRATE) [Suspect]
     Indication: DRUG USE FOR UNKNOWN INDICATION
     Dosage: 5 MG; QD; CUT
     Route: 003
  2. ENOXACINE (ENOXACIN) [Suspect]
     Indication: ORCHITIS
     Dosage: 200 MG; BID;
     Dates: start: 20000126
  3. BAYPRESS [Concomitant]
  4. LIPANOR [Concomitant]

REACTIONS (2)
  - ORCHITIS [None]
  - VASCULAR PURPURA [None]
